FAERS Safety Report 9076273 (Version 1)
Quarter: 2013Q1

REPORT INFORMATION
  Report Type: Report from Study
  Country: US (occurrence: US)
  Receive Date: 20130129
  Receipt Date: 20130129
  Transmission Date: 20140127
  Serious: No
  Sender: FDA-Public Use
  Company Number: US-ABBOTT-12P-163-0947744-00

PATIENT
  Age: 28 Year
  Sex: Male

DRUGS (5)
  1. HUMIRA 40 MG/0.8 ML PEN [Suspect]
     Indication: CROHN^S DISEASE
     Dates: start: 20120519
  2. ENTOCORT [Concomitant]
     Indication: CROHN^S DISEASE
     Dosage: 9MG EVERY DAY
  3. COLAZAL [Concomitant]
     Indication: CROHN^S DISEASE
     Dosage: 9 TABLETS EVERY DAY
  4. CLARITIN [Concomitant]
     Indication: SEASONAL ALLERGY
  5. TYLENOL [Concomitant]
     Indication: HEADACHE

REACTIONS (1)
  - Injection site pain [Recovered/Resolved]
